FAERS Safety Report 13850887 (Version 1)
Quarter: 2017Q3

REPORT INFORMATION
  Report Type: Report from Study
  Country: CA (occurrence: CA)
  Receive Date: 20170810
  Receipt Date: 20170810
  Transmission Date: 20171127
  Serious: Yes (Other)
  Sender: FDA-Public Use
  Company Number: CA-AMGEN-CANSL2017117079

PATIENT
  Age: 78 Year
  Sex: Female

DRUGS (5)
  1. FISH OIL [Concomitant]
     Active Substance: FISH OIL
  2. PROLIA [Suspect]
     Active Substance: DENOSUMAB
     Indication: PRODUCT USED FOR UNKNOWN INDICATION
     Dosage: UNK
     Route: 065
     Dates: start: 20150119
  3. CRANBERRY. [Concomitant]
     Active Substance: CRANBERRY
  4. VITAMIN D [Concomitant]
     Active Substance: CHOLECALCIFEROL
  5. APO-LEVOCARB [Concomitant]
     Active Substance: CARBIDOPA\LEVODOPA

REACTIONS (4)
  - Memory impairment [Unknown]
  - Knee arthroplasty [Unknown]
  - Parkinson^s disease [Unknown]
  - Back pain [Unknown]

NARRATIVE: CASE EVENT DATE: 20150530
